FAERS Safety Report 21800365 (Version 1)
Quarter: 2022Q4

REPORT INFORMATION
  Report Type: Report from Study
  Country: CN (occurrence: None)
  Receive Date: 20221230
  Receipt Date: 20221230
  Transmission Date: 20230113
  Serious: Yes (Hospitalization)
  Sender: FDA-Public Use
  Company Number: 2022A411686

PATIENT
  Age: 65 Year
  Sex: Male

DRUGS (9)
  1. DURVALUMAB [Suspect]
     Active Substance: DURVALUMAB
     Indication: Oesophageal squamous cell carcinoma
     Route: 042
     Dates: start: 20220803, end: 20220803
  2. DURVALUMAB [Suspect]
     Active Substance: DURVALUMAB
     Indication: Oesophageal squamous cell carcinoma
     Route: 042
     Dates: start: 20221017, end: 20221017
  3. CISPLATIN [Suspect]
     Active Substance: CISPLATIN
     Indication: Oesophageal squamous cell carcinoma
     Route: 065
     Dates: start: 20220804, end: 20220804
  4. CISPLATIN [Suspect]
     Active Substance: CISPLATIN
     Indication: Oesophageal squamous cell carcinoma
     Route: 065
     Dates: start: 20220805, end: 20220805
  5. FLUOROURACIL [Suspect]
     Active Substance: FLUOROURACIL
     Indication: Oesophageal squamous cell carcinoma
     Route: 065
     Dates: start: 20220804, end: 20220806
  6. FLUOROURACIL [Suspect]
     Active Substance: FLUOROURACIL
     Indication: Oesophageal squamous cell carcinoma
     Route: 065
     Dates: start: 20220806, end: 20220808
  7. MORPHINE HYDROCHLORIDE SUPPOSITORY [Concomitant]
     Indication: Analgesic therapy
     Dosage: 20.0MG AS REQUIRED
     Route: 054
     Dates: start: 20220729
  8. LEVAMLODIPINE BESYLATE TABLETS [Concomitant]
     Indication: Hypertension
     Route: 048
     Dates: start: 2019
  9. HUMAN GRANULOCYTE COLONY STIMULATING FACTOR INJECTION [Concomitant]
     Indication: White blood cell count
     Dosage: 200UG/INHAL DAILY
     Route: 058
     Dates: start: 20221219, end: 20221219

REACTIONS (1)
  - Myelosuppression [Recovered/Resolved]

NARRATIVE: CASE EVENT DATE: 20221219
